FAERS Safety Report 9265984 (Version 6)
Quarter: 2014Q2

REPORT INFORMATION
  Report Type: Spontaneous
  Country: US (occurrence: US)
  Receive Date: 20130501
  Receipt Date: 20140520
  Transmission Date: 20141212
  Serious: Yes (Hospitalization)
  Sender: FDA-Public Use
  Company Number: US-B.I. PHARMACEUTICALS,INC./RIDGEFIELD-2013-BI-11931BP

PATIENT
  Age: 47 Year
  Sex: Female
  Weight: 136.08 kg

DRUGS (15)
  1. PRADAXA [Suspect]
     Indication: CEREBROVASCULAR ACCIDENT PROPHYLAXIS
     Dosage: 300 MG
     Route: 048
     Dates: start: 20120322, end: 20120728
  2. IMDUR [Concomitant]
     Dosage: 60 MG
     Route: 065
  3. LYRICA [Concomitant]
     Dosage: 200 MG
     Route: 065
  4. AGGRENOX [Concomitant]
     Dosage: 25 MG
     Route: 065
  5. COLACE [Concomitant]
     Dosage: 100 MG
     Route: 065
  6. METFORMIN [Concomitant]
     Dosage: 1000 MG
     Route: 065
  7. CLONIDIINE [Concomitant]
     Indication: HYPERTENSION
     Dosage: 0.6 MG
     Route: 065
  8. K-DUR [Concomitant]
     Dosage: 10 MEQ
     Route: 065
  9. CELEXA [Concomitant]
     Indication: DEPRESSION
     Dosage: 40 MG
     Route: 065
  10. NOVOLOG [Concomitant]
     Route: 065
  11. LASIX [Concomitant]
     Indication: ELECTROLYTE IMBALANCE
     Dosage: 20 MG
     Route: 065
  12. FISH OIL [Concomitant]
     Dosage: 1000 MG
     Route: 065
  13. ALBUTEROL [Concomitant]
     Route: 065
  14. LORTAB [Concomitant]
     Route: 065
  15. SIMVASTATIN [Concomitant]
     Indication: HYPERCHOLESTEROLAEMIA
     Route: 065

REACTIONS (8)
  - Lower gastrointestinal haemorrhage [Unknown]
  - Gastrointestinal haemorrhage [Unknown]
  - Myocardial infarction [Unknown]
  - Haemorrhagic anaemia [Unknown]
  - Renal failure acute [Unknown]
  - Respiratory failure [Unknown]
  - Hypoxia [Unknown]
  - Hypoglycaemia [Unknown]
